FAERS Safety Report 21527797 (Version 2)
Quarter: 2022Q4

REPORT INFORMATION
  Report Type: Spontaneous
  Country: US (occurrence: US)
  Receive Date: 20221031
  Receipt Date: 20221031
  Transmission Date: 20230113
  Serious: No
  Sender: FDA-Public Use
  Company Number: US-RECKITT BENCKISER HEALTHCARE INT LIMITED-RB-084879-2022

PATIENT
  Age: 83 Year
  Sex: Male

DRUGS (1)
  1. MUCINEX MAXIMUM STRENGTH [Suspect]
     Active Substance: GUAIFENESIN
     Indication: Secretion discharge
     Dosage: 1 DOSAGE FORM, BID
     Route: 048
     Dates: start: 20220224

REACTIONS (2)
  - Gastric disorder [Not Recovered/Not Resolved]
  - Product use issue [Not Recovered/Not Resolved]
